FAERS Safety Report 7484076-3 (Version None)
Quarter: 2011Q2

REPORT INFORMATION
  Report Type: 
  Country: None (occurrence: None)
  Receive Date: 20110513
  Receipt Date: 20110513
  Transmission Date: 20111010
  Serious: Yes (Hospitalization, Disabling, Other)
  Sender: FDA-Public Use
  Company Number: None

PATIENT
  Age: 17 Year
  Sex: Female
  Weight: 108.8633 kg

DRUGS (2)
  1. ABILIFY [Suspect]
     Indication: BIPOLAR DISORDER
     Dosage: 10MG DAILY PO
     Route: 048
  2. ZOLOFT [Suspect]
     Indication: DEPRESSION
     Dosage: 100MG DAILY PO
     Route: 048

REACTIONS (15)
  - DEPRESSION [None]
  - SUICIDAL IDEATION [None]
  - PAIN [None]
  - FEELING HOT [None]
  - PAIN IN JAW [None]
  - CHILLS [None]
  - PYREXIA [None]
  - ANGER [None]
  - HEADACHE [None]
  - HUNGER [None]
  - DRUG WITHDRAWAL SYNDROME [None]
  - PARAESTHESIA [None]
  - NIGHTMARE [None]
  - ANXIETY [None]
  - WEIGHT INCREASED [None]
